FAERS Safety Report 13339947 (Version 3)
Quarter: 2017Q1

REPORT INFORMATION
  Report Type: Spontaneous
  Country: IT (occurrence: IT)
  Receive Date: 20170316
  Receipt Date: 20170322
  Transmission Date: 20170428
  Serious: Yes (Hospitalization)
  Sender: FDA-Public Use
  Company Number: IT-ROCHE-1907197

PATIENT
  Age: 64 Year
  Sex: Female

DRUGS (1)
  1. CEFTRIAXONE. [Suspect]
     Active Substance: CEFTRIAXONE
     Indication: TOOTHACHE
     Route: 042
     Dates: start: 20151021, end: 20151021

REACTIONS (4)
  - Vomiting [Recovering/Resolving]
  - Loss of consciousness [Recovering/Resolving]
  - Anaphylactic shock [Recovering/Resolving]
  - Nausea [Recovering/Resolving]

NARRATIVE: CASE EVENT DATE: 20151021
